FAERS Safety Report 16021560 (Version 1)
Quarter: 2019Q1

REPORT INFORMATION
  Report Type: Spontaneous
  Country: US (occurrence: US)
  Receive Date: 20190301
  Receipt Date: 20190301
  Transmission Date: 20190418
  Serious: No
  Sender: FDA-Public Use
  Company Number: US-009507513-1902USA012142

PATIENT
  Sex: Female
  Weight: 81 kg

DRUGS (5)
  1. ATORVASTATIN [Suspect]
     Active Substance: ATORVASTATIN
     Indication: CARDIAC ASSISTANCE DEVICE USER
  2. ZOCOR [Suspect]
     Active Substance: SIMVASTATIN
     Dosage: 1 DOSAGE FORM, HS
     Route: 048
  3. ATORVASTATIN [Suspect]
     Active Substance: ATORVASTATIN
     Indication: STENT PLACEMENT
     Dosage: 10 MILLIGRAM, QD
     Route: 048
  4. LIPITOR [Suspect]
     Active Substance: ATORVASTATIN CALCIUM
     Dosage: 10 MILLIGRAM, QD
     Route: 048
  5. CRESTOR [Suspect]
     Active Substance: ROSUVASTATIN CALCIUM
     Dosage: 1 DOSAGE FORM, HS
     Route: 048

REACTIONS (3)
  - Wrong technique in product usage process [Unknown]
  - Pain in extremity [Recovered/Resolved]
  - Inability to afford medication [Unknown]
